FAERS Safety Report 23835085 (Version 2)
Quarter: 2024Q2

REPORT INFORMATION
  Report Type: Spontaneous
  Country: FI (occurrence: FI)
  Receive Date: 20240509
  Receipt Date: 20240510
  Transmission Date: 20240715
  Serious: Yes (Hospitalization, Other)
  Sender: FDA-Public Use
  Company Number: FI-JNJFOC-20240519220

PATIENT
  Age: 57 Year
  Sex: Female

DRUGS (14)
  1. FLUCONAZOLE [Suspect]
     Active Substance: FLUCONAZOLE
     Indication: Polyglandular autoimmune syndrome type I
     Dosage: 150 MG X 2 FLUCONAZOLE
     Route: 065
     Dates: start: 200901
  2. FLUCONAZOLE [Suspect]
     Active Substance: FLUCONAZOLE
     Dosage: 100 MG X 2 FLUCONAZOLE
     Route: 065
     Dates: start: 2009
  3. FLUCONAZOLE [Suspect]
     Active Substance: FLUCONAZOLE
     Dosage: 100 MG X 1 FLUCONAZOLE
     Route: 065
     Dates: start: 2012
  4. FLUCONAZOLE [Suspect]
     Active Substance: FLUCONAZOLE
     Dosage: UNK
     Route: 065
     Dates: start: 202010
  5. FLUCONAZOLE [Suspect]
     Active Substance: FLUCONAZOLE
     Dosage: UNK
     Route: 065
     Dates: end: 202103
  6. SPORANOX [Suspect]
     Active Substance: ITRACONAZOLE
     Indication: Polyglandular autoimmune syndrome type I
     Dosage: UNK
     Route: 065
  7. VORICONAZOLE [Suspect]
     Active Substance: VORICONAZOLE
     Indication: Polyglandular autoimmune syndrome type I
     Dosage: UNK
     Route: 048
     Dates: start: 200806
  8. NYSTATIN [Suspect]
     Active Substance: NYSTATIN
     Indication: Polyglandular autoimmune syndrome type I
     Dosage: UNK
     Route: 065
     Dates: start: 200901
  9. NYSTATIN [Suspect]
     Active Substance: NYSTATIN
     Dosage: UNK
     Route: 065
     Dates: start: 2012
  10. NYSTATIN [Suspect]
     Active Substance: NYSTATIN
     Dosage: UNK
     Route: 065
     Dates: start: 202010
  11. NYSTATIN [Suspect]
     Active Substance: NYSTATIN
     Dosage: UNK
     Route: 065
     Dates: end: 202103
  12. POSACONAZOLE [Suspect]
     Active Substance: POSACONAZOLE
     Indication: Polyglandular autoimmune syndrome type I
     Route: 065
  13. CASPOFUNGIN [Suspect]
     Active Substance: CASPOFUNGIN
     Indication: Polyglandular autoimmune syndrome type I
     Route: 065
  14. AMPHOTERICIN B [Suspect]
     Active Substance: AMPHOTERICIN B
     Indication: Polyglandular autoimmune syndrome type I
     Dosage: UNK
     Route: 065
     Dates: start: 200806

REACTIONS (1)
  - Drug resistance [Unknown]
